FAERS Safety Report 5186948-1 (Version None)
Quarter: 2006Q4

REPORT INFORMATION
  Report Type: 
  Country: None (occurrence: None)
  Receive Date: 20061213
  Receipt Date: 20061201
  Transmission Date: 20070319
  Serious: Yes (Hospitalization, Other)
  Sender: FDA-Public Use
  Company Number: 2006111038

PATIENT
  Age: 72 Year
  Sex: Female
  Weight: 63.5036 kg

DRUGS (8)
  1. INSPRA [Suspect]
     Indication: HYPERTENSION
     Dosage: 100 MG (50 MG, BID), ORAL
     Route: 048
     Dates: start: 20040101
  2. GLYBURIDE [Suspect]
     Indication: DIABETES MELLITUS
     Dosage: 5 MG (5 MG, QD), ORAL
     Route: 048
     Dates: start: 20030101
  3. LANOXIN [Suspect]
     Indication: ARRHYTHMIA
     Dosage: 0.25 MG (0.25 MG, QD), ORAL
     Route: 048
     Dates: start: 20040101
  4. METHYLDOPA [Suspect]
     Indication: HYPERTENSION
     Dosage: 3000 MG (1000 MG, TID), ORAL
     Route: 048
     Dates: start: 20040101
  5. ALDOMET [Concomitant]
  6. CALCIUM (CALCIUM) [Concomitant]
  7. MAGNESIUM (MAGNESIUM) [Concomitant]
  8. VITAMIN D [Concomitant]

REACTIONS (5)
  - ANGIONEUROTIC OEDEMA [None]
  - ARRHYTHMIA [None]
  - BLOOD GLUCOSE INCREASED [None]
  - HYPERSENSITIVITY [None]
  - HYPERTENSION [None]
